FAERS Safety Report 25632761 (Version 1)
Quarter: 2025Q3

REPORT INFORMATION
  Report Type: Spontaneous
  Country: US (occurrence: US)
  Receive Date: 20250801
  Receipt Date: 20250801
  Transmission Date: 20251020
  Serious: No
  Sender: GRIFOLS
  Company Number: US-IGSA-BIG0032603

PATIENT
  Sex: Female

DRUGS (33)
  1. GAMUNEX-C [Suspect]
     Active Substance: HUMAN IMMUNOGLOBULIN G
     Indication: Hypogammaglobulinaemia
     Dosage: 30 GRAM, Q.4WK.
     Route: 042
  2. GAMUNEX-C [Suspect]
     Active Substance: HUMAN IMMUNOGLOBULIN G
     Indication: Immunodeficiency common variable
  3. GEMTESA [Concomitant]
     Active Substance: VIBEGRON
     Route: 048
  4. FAMOTIDINE [Concomitant]
     Active Substance: FAMOTIDINE
     Route: 048
  5. LACTOBACILLUS ACIDOPHILUS [Concomitant]
     Active Substance: LACTOBACILLUS ACIDOPHILUS
     Route: 048
  6. OMEPRAZOLE [Concomitant]
     Active Substance: OMEPRAZOLE
     Route: 048
  7. WELLBUTRIN XL [Concomitant]
     Active Substance: BUPROPION HYDROCHLORIDE
  8. AZITHROMYCIN [Concomitant]
     Active Substance: AZITHROMYCIN
  9. SINGULAIR [Concomitant]
     Active Substance: MONTELUKAST SODIUM
     Route: 048
  10. ALBUTEROL SULFATE [Concomitant]
     Active Substance: ALBUTEROL SULFATE
  11. ASPIRIN [Concomitant]
     Active Substance: ASPIRIN
  12. ATORVASTATIN [Concomitant]
     Active Substance: ATORVASTATIN
     Route: 048
  13. BENZONATATE [Concomitant]
     Active Substance: BENZONATATE
     Route: 048
  14. CALCIUM [Concomitant]
     Active Substance: CALCIUM
  15. CRANBERRYNE [Concomitant]
  16. DICLOFENAC [Concomitant]
     Active Substance: DICLOFENAC
  17. DICYCLOMINE [Concomitant]
     Active Substance: DICYCLOMINE HYDROCHLORIDE
     Route: 048
  18. FENOFIBRATE [Concomitant]
     Active Substance: FENOFIBRATE
  19. HYDROCHLOROTHIAZIDE [Concomitant]
     Active Substance: HYDROCHLOROTHIAZIDE
  20. INCRUSE ELLIPTA [Concomitant]
     Active Substance: UMECLIDINIUM BROMIDE
  21. METOPROLOL [Concomitant]
     Active Substance: METOPROLOL
  22. VITAMINS NOS [Concomitant]
     Active Substance: VITAMINS
  23. POTASSIUM [Concomitant]
     Active Substance: POTASSIUM
     Route: 048
  24. PREDNISONE [Concomitant]
     Active Substance: PREDNISONE
     Route: 048
  25. PRIMIDONE [Concomitant]
     Active Substance: PRIMIDONE
     Route: 048
  26. PROAIR HFA [Concomitant]
     Active Substance: ALBUTEROL SULFATE
  27. SERTRALINE [Concomitant]
     Active Substance: SERTRALINE HYDROCHLORIDE
     Route: 048
  28. TRAMADOL HCL [Concomitant]
     Active Substance: TRAMADOL HYDROCHLORIDE
     Route: 048
  29. VITAMIN B12 [Concomitant]
     Active Substance: CYANOCOBALAMIN
     Route: 048
  30. VITAMIN C [Concomitant]
     Active Substance: ASCORBIC ACID
     Route: 048
  31. VITAMIN D NOS [Concomitant]
     Active Substance: CHOLECALCIFEROL\ERGOCALCIFEROL
  32. ZANAFLEX [Concomitant]
     Active Substance: TIZANIDINE HYDROCHLORIDE
     Route: 048
  33. ZYRTEC [Concomitant]
     Active Substance: CETIRIZINE HYDROCHLORIDE
     Route: 048

REACTIONS (2)
  - Headache [Recovered/Resolved]
  - Illness [Recovered/Resolved]
